FAERS Safety Report 14114732 (Version 1)
Quarter: 2017Q4

REPORT INFORMATION
  Report Type: Spontaneous
  Country: NL (occurrence: NL)
  Receive Date: 20171023
  Receipt Date: 20171023
  Transmission Date: 20180321
  Serious: Yes (Hospitalization)
  Sender: FDA-Public Use
  Company Number: NL-SA-2017SA198822

PATIENT
  Age: 71 Year
  Sex: Male

DRUGS (1)
  1. BCG FOR IMMUNOTHERAPY [Suspect]
     Active Substance: BACILLUS CALMETTE-GUERIN ANTIGEN, UNSPECIFIED SUBSTRAIN
     Indication: BLADDER CANCER
     Route: 043
     Dates: start: 201311, end: 201311

REACTIONS (13)
  - Psoas abscess [Recovered/Resolved]
  - Pyrexia [Recovering/Resolving]
  - Night sweats [Recovering/Resolving]
  - Mediastinal abscess [Recovering/Resolving]
  - Liver abscess [Recovering/Resolving]
  - Malaise [Recovering/Resolving]
  - Bone abscess [Recovering/Resolving]
  - Iliac artery rupture [Recovered/Resolved]
  - Renal abscess [Recovering/Resolving]
  - Weight decreased [Recovering/Resolving]
  - Abdominal pain [Recovering/Resolving]
  - Disseminated Bacillus Calmette-Guerin infection [Recovering/Resolving]
  - Haematoma [Recovered/Resolved]
